FAERS Safety Report 18038341 (Version 2)
Quarter: 2020Q3

REPORT INFORMATION
  Report Type: Report from Study
  Country: BR (occurrence: BR)
  Receive Date: 20200717
  Receipt Date: 20200731
  Transmission Date: 20201103
  Serious: Yes (Life-Threatening, Hospitalization, Other)
  Sender: FDA-Public Use
  Company Number: NVSC2020BR198529

PATIENT
  Age: 9 Year
  Sex: Female
  Weight: 40 kg

DRUGS (3)
  1. TRAMETINIB [Suspect]
     Active Substance: TRAMETINIB
     Indication: ASTROCYTOMA, LOW GRADE
     Dosage: 0.8 MG, QD
     Route: 048
     Dates: start: 20190107, end: 20200704
  2. CLEXANE [Concomitant]
     Active Substance: ENOXAPARIN SODIUM
     Indication: PRODUCT USED FOR UNKNOWN INDICATION
     Dosage: UNK
     Route: 065
  3. TRAMETINIB [Suspect]
     Active Substance: TRAMETINIB
     Indication: DISEASE PROGRESSION

REACTIONS (26)
  - Seizure [Recovering/Resolving]
  - C-reactive protein increased [Unknown]
  - Somnolence [Unknown]
  - Alanine aminotransferase increased [Unknown]
  - Aspartate aminotransferase increased [Unknown]
  - Hypertension [Recovering/Resolving]
  - Septic shock [Unknown]
  - Systemic inflammatory response syndrome [Unknown]
  - Hypothalamo-pituitary disorder [Unknown]
  - Sinus bradycardia [Unknown]
  - Respiratory symptom [Unknown]
  - Impetigo [Unknown]
  - Mental status changes [Unknown]
  - Headache [Unknown]
  - Hypovolaemic shock [Recovering/Resolving]
  - Dermatitis exfoliative generalised [Unknown]
  - Balance disorder [Unknown]
  - Toxicity to various agents [Unknown]
  - Red blood cell sedimentation rate increased [Unknown]
  - Procalcitonin increased [Unknown]
  - Fibrin D dimer [Unknown]
  - Rash [Unknown]
  - Bradycardia [Recovering/Resolving]
  - Hypothermia [Unknown]
  - Rash erythematous [Recovering/Resolving]
  - Posterior reversible encephalopathy syndrome [Unknown]

NARRATIVE: CASE EVENT DATE: 20200704
